FAERS Safety Report 18234886 (Version 9)
Quarter: 2021Q1

REPORT INFORMATION
  Report Type: Spontaneous
  Country: US (occurrence: US)
  Receive Date: 20200904
  Receipt Date: 20210305
  Transmission Date: 20210419
  Serious: Yes (Hospitalization)
  Sender: FDA-Public Use
  Company Number: NVSC2020US241139

PATIENT
  Age: 1 Year
  Sex: Male
  Weight: 10 kg

DRUGS (3)
  1. METHYLPREDNISOLONE. [Concomitant]
     Active Substance: METHYLPREDNISOLONE
     Indication: PRODUCT USED FOR UNKNOWN INDICATION
     Dosage: UNK
     Route: 042
     Dates: start: 20201019
  2. ZOLGENSMA [Suspect]
     Active Substance: ONASEMNOGENE ABEPARVOVEC-XIOI
     Indication: SPINAL MUSCULAR ATROPHY
     Dosage: UNK, ONCE/SINGLE
     Route: 042
     Dates: start: 20200827, end: 20200827
  3. METHYLPREDNISOLONE. [Concomitant]
     Active Substance: METHYLPREDNISOLONE
     Dosage: SECOND DOSE
     Route: 042

REACTIONS (13)
  - Prothrombin time abnormal [Recovering/Resolving]
  - Liver function test increased [Unknown]
  - Feeling abnormal [Unknown]
  - Hypoglycaemia [Unknown]
  - Decreased appetite [Unknown]
  - Pyrexia [Unknown]
  - Pallor [Unknown]
  - Lethargy [Unknown]
  - Activated partial thromboplastin time abnormal [Recovering/Resolving]
  - International normalised ratio abnormal [Recovering/Resolving]
  - Hypertension [Unknown]
  - Hepatic enzyme increased [Unknown]
  - Rhinorrhoea [Unknown]

NARRATIVE: CASE EVENT DATE: 20200830
